FAERS Safety Report 5591009-3 (Version None)
Quarter: 2008Q1

REPORT INFORMATION
  Report Type: 
  Country: None (occurrence: None)
  Receive Date: 20080110
  Receipt Date: 20071018
  Transmission Date: 20080703
  Serious: Yes (Death)
  Sender: FDA-Public Use
  Company Number: 865#9#2007-00012

PATIENT
  Age: 75 Year
  Sex: Male

DRUGS (17)
  1. ROTIGOTINE,                PATCH (SILICONE) [Suspect]
     Indication: PARKINSON'S DISEASE
     Dosage: SEE IMAGE, TRANSDERMAL
     Route: 062
     Dates: start: 20070725, end: 20070801
  2. ROTIGOTINE,                PATCH (SILICONE) [Suspect]
     Indication: PARKINSON'S DISEASE
     Dosage: SEE IMAGE, TRANSDERMAL
     Route: 062
     Dates: start: 20070801, end: 20070808
  3. ROTIGOTINE,                PATCH (SILICONE) [Suspect]
     Indication: PARKINSON'S DISEASE
     Dosage: SEE IMAGE, TRANSDERMAL
     Route: 062
     Dates: start: 20070808, end: 20070818
  4. ROTIGOTINE,                PATCH (SILICONE) [Suspect]
     Indication: PARKINSON'S DISEASE
     Dosage: SEE IMAGE, TRANSDERMAL
     Route: 062
     Dates: start: 20070818, end: 20070822
  5. ROTIGOTINE,                PATCH (SILICONE) [Suspect]
     Indication: PARKINSON'S DISEASE
     Dosage: SEE IMAGE, TRANSDERMAL
     Route: 062
     Dates: start: 20070822, end: 20070829
  6. ROTIGOTINE,                PATCH (SILICONE) [Suspect]
     Indication: PARKINSON'S DISEASE
     Dosage: SEE IMAGE, TRANSDERMAL
     Route: 062
     Dates: start: 20070829, end: 20070905
  7. ROTIGOTINE,                PATCH (SILICONE) [Suspect]
     Indication: PARKINSON'S DISEASE
     Dosage: SEE IMAGE, TRANSDERMAL
     Route: 062
     Dates: start: 20070905, end: 20070912
  8. ROTIGOTINE,                PATCH (SILICONE) [Suspect]
     Indication: PARKINSON'S DISEASE
     Dosage: SEE IMAGE, TRANSDERMAL
     Route: 062
     Dates: start: 20070912, end: 20071017
  9. KALLIDINOGENASE                             (KALLIDINOGENASE) [Concomitant]
  10. LEVODOPA BENSERAZIDE HYDROCHLO [Concomitant]
  11. PANTETHINE                       (PANETHINE) [Concomitant]
  12. FLUDROCORTISONE ACETATE [Concomitant]
  13. PIOGLITAZONE HCL [Concomitant]
  14. VOGLIBOSE            (VOGLIBOSE) [Concomitant]
  15. GLIMEPIRIDE [Concomitant]
  16. CARBAZOCHROME SODIUM SULFONATE                 (CARBAZOCHROME SODIUM S [Concomitant]
  17. SENNA LEAF SEENA POD [Concomitant]

REACTIONS (8)
  - BLOOD PRESSURE DECREASED [None]
  - CARDIAC FAILURE ACUTE [None]
  - CARDIO-RESPIRATORY ARREST [None]
  - CARDIOVASCULAR DISORDER [None]
  - FALL [None]
  - LOSS OF CONSCIOUSNESS [None]
  - SUDDEN DEATH [None]
  - UNRESPONSIVE TO STIMULI [None]
